FAERS Safety Report 13068796 (Version 2)
Quarter: 2016Q4

REPORT INFORMATION
  Report Type: Spontaneous
  Country: AU (occurrence: AU)
  Receive Date: 20161228
  Receipt Date: 20161230
  Transmission Date: 20170207
  Serious: Yes (Hospitalization, Other)
  Sender: FDA-Public Use
  Company Number: AU-KADMON PHARMACEUTICALS, LLC-KAD201612-004662

PATIENT
  Age: 64 Year
  Sex: Male
  Weight: 72.54 kg

DRUGS (9)
  1. RIBAVIRIN. [Suspect]
     Active Substance: RIBAVIRIN
     Indication: HEPATITIS C
     Dosage: TABLET
     Route: 048
  2. FRUSEMIDE [Concomitant]
     Active Substance: FUROSEMIDE
  3. VIEKIRA PAK [Suspect]
     Active Substance: DASABUVIR\OMBITASVIR\PARITAPREVIR\RITONAVIR
     Indication: HEPATITIS C
     Dosage: TABLET
     Route: 048
     Dates: start: 20160630, end: 20160731
  4. LANTUS [Concomitant]
     Active Substance: INSULIN GLARGINE
  5. LINAGLIPTIN [Concomitant]
     Active Substance: LINAGLIPTIN
  6. PANTOPRAZOLE [Concomitant]
     Active Substance: PANTOPRAZOLE SODIUM
  7. METOPROLOL. [Concomitant]
     Active Substance: METOPROLOL
  8. CALCIUM CARBONATE. [Concomitant]
     Active Substance: CALCIUM CARBONATE
  9. AMLODIPINE [Concomitant]
     Active Substance: AMLODIPINE BESYLATE

REACTIONS (7)
  - Confusional state [Not Recovered/Not Resolved]
  - Hypotension [Unknown]
  - Hepatic failure [Unknown]
  - Communication disorder [Unknown]
  - Encephalopathy [Unknown]
  - Hypothermia [Recovered/Resolved]
  - Sepsis [Unknown]
